FAERS Safety Report 12648429 (Version 5)
Quarter: 2017Q3

REPORT INFORMATION
  Report Type: Report from Study
  Country: US (occurrence: US)
  Receive Date: 20160812
  Receipt Date: 20170726
  Transmission Date: 20171127
  Serious: Yes (Other)
  Sender: FDA-Public Use
  Company Number: US-SAOL THERAPEUTICS-2016SAO00375

PATIENT
  Age: 62 Year
  Sex: Female

DRUGS (24)
  1. DILAUDID [Suspect]
     Active Substance: HYDROMORPHONE HYDROCHLORIDE
     Dosage: 4.154 MG, \DAY
     Dates: start: 20160201, end: 20160209
  2. DILAUDID [Suspect]
     Active Substance: HYDROMORPHONE HYDROCHLORIDE
     Dosage: 7.617 MG, \DAY
     Route: 037
     Dates: start: 20160201, end: 20160209
  3. DILAUDID [Suspect]
     Active Substance: HYDROMORPHONE HYDROCHLORIDE
     Dosage: 1.600 MG, \DAY
     Route: 037
     Dates: start: 20170227
  4. COMPOUNDED BACLOFEN [Suspect]
     Active Substance: BACLOFEN
     Indication: LUMBAR RADICULOPATHY
     Dosage: 457.03 ?G, \DAY
     Route: 037
     Dates: start: 20160201, end: 20160209
  5. COMPOUNDED BACLOFEN [Suspect]
     Active Substance: BACLOFEN
     Dosage: 228.22 ?G, \DAY
     Route: 037
     Dates: start: 20160209
  6. DILAUDID [Suspect]
     Active Substance: HYDROMORPHONE HYDROCHLORIDE
     Dosage: 3.963 MG, \DAY
     Route: 037
     Dates: start: 20170227
  7. COMPOUNDED BACLOFEN [Suspect]
     Active Substance: BACLOFEN
     Dosage: 79.3 ?G, \DAY
     Route: 037
     Dates: start: 20170126, end: 20170227
  8. DILAUDID [Suspect]
     Active Substance: HYDROMORPHONE HYDROCHLORIDE
     Dosage: 7.277 MG, \DAY
     Dates: start: 20160209
  9. DILAUDID [Suspect]
     Active Substance: HYDROMORPHONE HYDROCHLORIDE
     Dosage: 1.321 MG, \DAY
     Route: 037
     Dates: start: 20170126, end: 20170227
  10. BUPIVACAINE. [Suspect]
     Active Substance: BUPIVACAINE
     Dosage: 7.607 MG, \DAY
     Route: 037
     Dates: start: 20160209, end: 20160209
  11. BUPIVACAINE. [Suspect]
     Active Substance: BUPIVACAINE
     Dosage: 11.891 MG, \DAY
     Route: 037
     Dates: start: 20170227
  12. COMPOUNDED BACLOFEN [Suspect]
     Active Substance: BACLOFEN
     Indication: PAIN
     Dosage: 249.29 ?G, \DAY
     Route: 037
     Dates: start: 20160201, end: 20160209
  13. COMPOUNDED BACLOFEN [Suspect]
     Active Substance: BACLOFEN
     Dosage: 164.45 ?G, \DAY
     Route: 037
     Dates: start: 20170126, end: 20170227
  14. BUPIVACAINE. [Suspect]
     Active Substance: BUPIVACAINE
     Dosage: 15.234 MG, \DAY
     Route: 037
     Dates: start: 20160201, end: 20160209
  15. DILAUDID [Suspect]
     Active Substance: HYDROMORPHONE HYDROCHLORIDE
     Dosage: 3.804 MG, \DAY
     Route: 037
     Dates: start: 20160209, end: 20160209
  16. DILAUDID [Suspect]
     Active Substance: HYDROMORPHONE HYDROCHLORIDE
     Dosage: 2.740 MG, \DAY
     Route: 037
     Dates: start: 20170126, end: 20170227
  17. COMPOUNDED BACLOFEN [Suspect]
     Active Substance: BACLOFEN
     Dosage: 436.67 ?G, \DAY
     Route: 037
     Dates: start: 20160209
  18. COMPOUNDED BACLOFEN [Suspect]
     Active Substance: BACLOFEN
     Dosage: 237.81 ?G, \DAY
     Route: 037
     Dates: start: 20170227
  19. BUPIVACAINE. [Suspect]
     Active Substance: BUPIVACAINE
     Dosage: 3.965 MG, \DAY
     Route: 037
     Dates: start: 20170126, end: 20170227
  20. BUPIVACAINE. [Suspect]
     Active Substance: BUPIVACAINE
     Dosage: 8.223 MG, \DAY
     Route: 037
     Dates: start: 20170126, end: 20170227
  21. COMPOUNDED BACLOFEN [Suspect]
     Active Substance: BACLOFEN
     Dosage: 96.05 ?G, \DAY
     Route: 037
     Dates: start: 20170227
  22. BUPIVACAINE. [Suspect]
     Active Substance: BUPIVACAINE
     Dosage: 14.556 MG, \DAY
     Route: 037
     Dates: start: 20160209, end: 20160209
  23. BUPIVACAINE. [Suspect]
     Active Substance: BUPIVACAINE
     Dosage: 8.310 MG, \DAY
     Route: 037
     Dates: start: 20160201, end: 20160209
  24. BUPIVACAINE. [Suspect]
     Active Substance: BUPIVACAINE
     Dosage: 4.803 MG, \DAY
     Route: 037
     Dates: start: 20170227

REACTIONS (8)
  - Asthenia [Recovered/Resolved]
  - Cerebrospinal fluid leakage [Recovered/Resolved]
  - Device malfunction [Unknown]
  - Balance disorder [Recovered/Resolved]
  - Muscular weakness [Recovered/Resolved]
  - Off label use [Unknown]
  - Implant site extravasation [Recovered/Resolved]
  - Hypoaesthesia [Recovered/Resolved]

NARRATIVE: CASE EVENT DATE: 20170323
